FAERS Safety Report 8815683 (Version 2)
Quarter: 2012Q4

REPORT INFORMATION
  Report Type: 
  Country: IT (occurrence: IT)
  Receive Date: 20120928
  Receipt Date: 20121015
  Transmission Date: 20130627
  Serious: Yes (Hospitalization)
  Sender: FDA-Public Use
  Company Number: IT-PFIZER INC-2012238861

PATIENT
  Age: 80 Year
  Sex: Female

DRUGS (3)
  1. CELEBREX [Suspect]
     Indication: OSTEOARTHRITIS
     Dosage: 200 mg, 1x/day
     Dates: start: 20120921, end: 20120922
  2. ZESTORETIC [Concomitant]
     Indication: HYPERTENSION
     Dosage: 20 mg + 12.5 mg
     Route: 048
  3. NORMIX [Concomitant]
     Indication: DIVERTICULITIS
     Dosage: 200 mg, UNK
     Route: 048

REACTIONS (2)
  - Cerebrovascular accident [Not Recovered/Not Resolved]
  - Paraesthesia [Not Recovered/Not Resolved]
